FAERS Safety Report 13517393 (Version 1)
Quarter: 2017Q2

REPORT INFORMATION
  Report Type: Spontaneous
  Country: US (occurrence: US)
  Receive Date: 20170504
  Receipt Date: 20170504
  Transmission Date: 20170830
  Serious: No
  Sender: FDA-Public Use
  Company Number: None

PATIENT
  Sex: Female
  Weight: 83.08 kg

DRUGS (1)
  1. ENBREL [Suspect]
     Active Substance: ETANERCEPT
     Indication: RHEUMATOID ARTHRITIS
     Dosage: 50MG/ML QWK SUBQ
     Route: 058

REACTIONS (5)
  - Drug ineffective [None]
  - Pain [None]
  - Rheumatoid arthritis [None]
  - Abasia [None]
  - Joint swelling [None]
